FAERS Safety Report 9823168 (Version 2)
Quarter: 2014Q1

REPORT INFORMATION
  Report Type: Spontaneous
  Country: US (occurrence: US)
  Receive Date: 20140116
  Receipt Date: 20140116
  Transmission Date: 20141002
  Serious: No
  Sender: FDA-Public Use
  Company Number: US-GILEAD-2011-0035987

PATIENT
  Age: 50 Year
  Sex: Male

DRUGS (1)
  1. LETAIRIS [Suspect]
     Indication: PULMONARY HYPERTENSION
     Route: 048
     Dates: start: 201012, end: 20110107

REACTIONS (3)
  - Sleep terror [Recovered/Resolved]
  - Agitation [Recovered/Resolved]
  - Dyspnoea [Recovered/Resolved]
